FAERS Safety Report 7995055-1 (Version None)
Quarter: 2011Q4

REPORT INFORMATION
  Report Type: 
  Country: None (occurrence: None)
  Receive Date: 20111220
  Receipt Date: 20111003
  Transmission Date: 20120403
  Serious: No
  Sender: FDA-Public Use
  Company Number: US-MYLANLABS-2011S1018096

PATIENT
  Age: 64 Year
  Sex: Female

DRUGS (12)
  1. BUPROPION HYDROCHLORIDE [Concomitant]
     Indication: DEPRESSION
     Route: 048
  2. LANSOPRAZOLE [Concomitant]
     Indication: GASTROOESOPHAGEAL REFLUX DISEASE
     Route: 048
  3. CALCIUM CARBONATE [Concomitant]
     Indication: MINERAL SUPPLEMENTATION
     Route: 048
  4. ANASTROZOLE [Suspect]
     Indication: BREAST CANCER
     Route: 048
     Dates: start: 20110102
  5. RADIATION THERAPY [Suspect]
     Indication: BREAST CANCER
     Dates: start: 20100101, end: 20100101
  6. ENALAPRIL MALEATE [Concomitant]
     Indication: BLOOD PRESSURE
     Route: 048
  7. ESCITALOPRAM OXALATE [Concomitant]
     Indication: DEPRESSION
     Route: 048
  8. INTERFERON [Concomitant]
     Indication: MULTIPLE SCLEROSIS
     Route: 030
  9. IBUPROFEN [Concomitant]
  10. NAPROXEN (ALEVE) [Concomitant]
  11. BUPROPION HCL RETARD TABLETS SR (SMOKING CESSATION) 150 MG [Concomitant]
     Indication: DEPRESSION
     Route: 048
  12. ACETAMINOPHEN [Concomitant]

REACTIONS (5)
  - PAIN [None]
  - PAIN IN EXTREMITY [None]
  - ARTHRALGIA [None]
  - MYALGIA [None]
  - JOINT STIFFNESS [None]
